FAERS Safety Report 16372728 (Version 2)
Quarter: 2019Q2

REPORT INFORMATION
  Report Type: Spontaneous
  Country: US (occurrence: US)
  Receive Date: 20190530
  Receipt Date: 20190603
  Transmission Date: 20190711
  Serious: Yes (Other)
  Sender: FDA-Public Use
  Company Number: US-PFIZER INC-2019225536

PATIENT
  Sex: Female

DRUGS (1)
  1. VFEND [Suspect]
     Active Substance: VORICONAZOLE
     Indication: BRONCHOPULMONARY ASPERGILLOSIS
     Dosage: UNK
     Dates: start: 201901, end: 20190518

REACTIONS (8)
  - Sunburn [Unknown]
  - Photosensitivity reaction [Unknown]
  - Skin discolouration [Unknown]
  - Rash [Unknown]
  - Pruritus [Unknown]
  - Neoplasm [Unknown]
  - Electrocardiogram QT prolonged [Unknown]
  - Facial pain [Unknown]
